FAERS Safety Report 8789207 (Version 1)
Quarter: 2012Q4

REPORT INFORMATION
  Report Type: Spontaneous
  Country: FR (occurrence: None)
  Receive Date: 20120905
  Receipt Date: 20120905
  Transmission Date: 20130627
  Serious: Yes (Hospitalization)
  Sender: FDA-Public Use
  Company Number: 2012MA010365

PATIENT
  Age: 13 Year
  Sex: Female

DRUGS (1)
  1. DILTIAZEM HYDROCHLORIDE [Suspect]
     Route: 048

REACTIONS (13)
  - Clonic convulsion [None]
  - Convulsion [None]
  - Toxicity to various agents [None]
  - Incorrect dose administered [None]
  - Sinus bradycardia [None]
  - Left ventricular dysfunction [None]
  - Ejection fraction decreased [None]
  - Metabolic acidosis [None]
  - Renal failure acute [None]
  - Dialysis [None]
  - Multi-organ failure [None]
  - Shock [None]
  - No therapeutic response [None]
